FAERS Safety Report 8552521 (Version 3)
Quarter: 2012Q4

REPORT INFORMATION
  Report Type: 
  Country: US (occurrence: US)
  Receive Date: 20120508
  Receipt Date: 20121012
  Transmission Date: 20130627
  Serious: No
  Sender: FDA-Public Use
  Company Number: US-PFIZER INC-2012110496

PATIENT
  Age: 87 Year
  Sex: Male
  Weight: 63.5 kg

DRUGS (4)
  1. CELEBREX [Suspect]
     Indication: SPINAL COLUMN STENOSIS
     Dosage: 200 mg, Daily
     Route: 048
     Dates: start: 20120422, end: 20120430
  2. CELEBREX [Suspect]
     Indication: SPINAL OSTEOARTHRITIS
  3. CELEBREX [Suspect]
     Indication: SPONDYLITIS
  4. LIPITOR [Concomitant]
     Dosage: 5 mg, Alternate day

REACTIONS (1)
  - Prostatic specific antigen increased [Unknown]
